FAERS Safety Report 18244290 (Version 2)
Quarter: 2021Q3

REPORT INFORMATION
  Report Type: Spontaneous
  Country: US (occurrence: US)
  Receive Date: 20200908
  Receipt Date: 20210826
  Transmission Date: 20211014
  Serious: Yes (Other)
  Sender: FDA-Public Use
  Company Number: US-JNJFOC-20200844941

PATIENT
  Age: 5 Decade
  Sex: Female

DRUGS (2)
  1. ELMIRON [Suspect]
     Active Substance: PENTOSAN POLYSULFATE SODIUM
     Indication: CYSTITIS INTERSTITIAL
     Route: 048
     Dates: start: 2007, end: 202008
  2. DETROL LA [Concomitant]
     Active Substance: TOLTERODINE TARTRATE
     Indication: MICTURITION URGENCY
     Route: 048
     Dates: start: 2007

REACTIONS (6)
  - Maculopathy [Unknown]
  - Cataract nuclear [Unknown]
  - Dry age-related macular degeneration [Not Recovered/Not Resolved]
  - Retinal pigmentation [Unknown]
  - Product use issue [Unknown]
  - Off label use [Unknown]

NARRATIVE: CASE EVENT DATE: 2007
